FAERS Safety Report 4953161-X (Version None)
Quarter: 2006Q1

REPORT INFORMATION
  Report Type: 
  Country: None (occurrence: None)
  Receive Date: 20060320
  Receipt Date: 20060309
  Transmission Date: 20060701
  Serious: Yes (Other)
  Sender: FDA-Public Use
  Company Number: 200611052BCC

PATIENT
  Age: 80 Year
  Sex: Male
  Weight: 76.2043 kg

DRUGS (1)
  1. ALEVE [Suspect]
     Indication: HEADACHE
     Dosage: 220 MG, ORAL
     Route: 048
     Dates: start: 20060321, end: 20060301

REACTIONS (1)
  - HYPERTENSION [None]
